FAERS Safety Report 20665163 (Version 1)
Quarter: 2022Q2

REPORT INFORMATION
  Report Type: Spontaneous
  Country: TW (occurrence: TW)
  Receive Date: 20220401
  Receipt Date: 20220401
  Transmission Date: 20220721
  Serious: Yes (Other)
  Sender: FDA-Public Use
  Company Number: TW-JAZZ-2022-TW-009001

PATIENT

DRUGS (1)
  1. ASPARAGINASE [Suspect]
     Active Substance: ASPARAGINASE
     Indication: Acute lymphocytic leukaemia
     Dosage: 5000 IU/M2, D9,11,13,16,18,20,23,25,27 INDUCTION

REACTIONS (1)
  - Pancreatitis necrotising [Unknown]
